FAERS Safety Report 17134834 (Version 1)
Quarter: 2019Q4

REPORT INFORMATION
  Report Type: Spontaneous
  Country: JP (occurrence: JP)
  Receive Date: 20191210
  Receipt Date: 20191210
  Transmission Date: 20200122
  Serious: Yes (Hospitalization)
  Sender: FDA-Public Use
  Company Number: NVSC2019JP061730

PATIENT
  Age: 65 Year
  Sex: Male

DRUGS (2)
  1. TAZOBACTAM [Suspect]
     Active Substance: TAZOBACTAM
     Indication: STAPHYLOCOCCAL INFECTION
     Dosage: 4.5 G TWICE DAILY, INTRAVENOUSLY
     Route: 042
  2. VANCOMYCIN [Suspect]
     Active Substance: VANCOMYCIN
     Indication: STAPHYLOCOCCAL INFECTION
     Dosage: 0.5 G EVERY 2-3 DAYS AFTER DIALYSIS, INTRAVENOUSLY
     Route: 042

REACTIONS (2)
  - Traumatic lung injury [Unknown]
  - Eosinophilic pneumonia [Unknown]
